FAERS Safety Report 7798048-2 (Version None)
Quarter: 2011Q4

REPORT INFORMATION
  Report Type: 
  Country: None (occurrence: None)
  Receive Date: 20111005
  Receipt Date: 20110923
  Transmission Date: 20120403
  Serious: Yes (Other)
  Sender: FDA-Public Use
  Company Number: US-CELGENEUS-163-20785-08010438

PATIENT
  Sex: Female

DRUGS (5)
  1. THALOMID [Suspect]
     Indication: MULTIPLE MYELOMA
     Dosage: 100 MILLIGRAM
     Route: 048
     Dates: start: 20061001
  2. THALOMID [Suspect]
     Dosage: 200 MILLIGRAM
     Route: 048
     Dates: start: 20061101
  3. THALOMID [Suspect]
     Dosage: 100 MILLIGRAM
     Route: 048
     Dates: start: 20080901, end: 20090101
  4. THALOMID [Suspect]
     Dosage: 150-200MG
     Route: 048
     Dates: start: 20070701
  5. THALOMID [Suspect]
     Dosage: 50-00MG
     Route: 048
     Dates: start: 20091001, end: 20110422

REACTIONS (1)
  - HUMAN CHORIONIC GONADOTROPIN INCREASED [None]
